FAERS Safety Report 24356060 (Version 1)
Quarter: 2024Q3

REPORT INFORMATION
  Report Type: Spontaneous
  Country: JP (occurrence: JP)
  Receive Date: 20240924
  Receipt Date: 20240924
  Transmission Date: 20241017
  Serious: Yes (Death, Other)
  Sender: TAKEDA
  Company Number: JP-OTSUKA-2024_026078

PATIENT
  Age: 77 Year
  Sex: Female

DRUGS (4)
  1. ICLUSIG [Suspect]
     Active Substance: PONATINIB\PONATINIB HYDROCHLORIDE
     Indication: Philadelphia positive acute lymphocytic leukaemia
     Dosage: UNK
     Route: 048
     Dates: start: 2023, end: 20230927
  2. ICLUSIG [Suspect]
     Active Substance: PONATINIB\PONATINIB HYDROCHLORIDE
     Dosage: UNK
     Route: 048
     Dates: start: 20230302, end: 2023
  3. PREDNISOLONE [Suspect]
     Active Substance: PREDNISOLONE
     Indication: Philadelphia positive acute lymphocytic leukaemia
     Dosage: UNK
     Route: 065
     Dates: start: 20230302, end: 2023
  4. PREDNISOLONE [Suspect]
     Active Substance: PREDNISOLONE
     Dosage: UNK
     Route: 065

REACTIONS (4)
  - Philadelphia positive acute lymphocytic leukaemia [Fatal]
  - Cardiac failure [Recovered/Resolved]
  - Delirium [Unknown]
  - Ejection fraction decreased [Recovered/Resolved]

NARRATIVE: CASE EVENT DATE: 20230101
